FAERS Safety Report 16788070 (Version 1)
Quarter: 2019Q3

REPORT INFORMATION
  Report Type: Spontaneous
  Country: AE (occurrence: AE)
  Receive Date: 20190909
  Receipt Date: 20190909
  Transmission Date: 20191005
  Serious: Yes (Life-Threatening, Hospitalization)
  Sender: FDA-Public Use
  Company Number: PHHY2019AE207419

PATIENT
  Age: 16 Year
  Sex: Female
  Weight: 60 kg

DRUGS (2)
  1. JADENU [Suspect]
     Active Substance: DEFERASIROX
     Indication: THALASSAEMIA
     Dosage: 24 MG/KG, QD
     Route: 048
  2. TETRACYCLINE [Concomitant]
     Active Substance: TETRACYCLINE
     Indication: PRODUCT USED FOR UNKNOWN INDICATION
     Dosage: 300 MG, QD
     Route: 065
     Dates: start: 20190822

REACTIONS (1)
  - Renal tubular acidosis [Recovering/Resolving]

NARRATIVE: CASE EVENT DATE: 20190902
